FAERS Safety Report 4287873-0 (Version None)
Quarter: 2004Q1

REPORT INFORMATION
  Report Type: 
  Country: None (occurrence: None)
  Receive Date: 20040209
  Receipt Date: 20031017
  Transmission Date: 20041129
  Serious: No
  Sender: FDA-Public Use
  Company Number: US-GLAXOSMITHKLINE-A0430742A

PATIENT
  Sex: Female

DRUGS (2)
  1. PAXIL [Suspect]
     Indication: DEPRESSION
     Route: 048
     Dates: start: 19990101
  2. PAXIL [Concomitant]
     Dates: start: 19990101

REACTIONS (6)
  - ALCOHOL PROBLEM [None]
  - DEPRESSION [None]
  - DRUG WITHDRAWAL SYNDROME [None]
  - PAIN [None]
  - PARAESTHESIA [None]
  - PERFORMANCE STATUS DECREASED [None]
